FAERS Safety Report 4600012-9 (Version None)
Quarter: 2005Q1

REPORT INFORMATION
  Report Type: 
  Country: None (occurrence: None)
  Receive Date: 20050303
  Receipt Date: 20050215
  Transmission Date: 20050727
  Serious: Yes (Hospitalization)
  Sender: FDA-Public Use
  Company Number: DSA_26016_2005

PATIENT
  Age: 72 Year
  Sex: Female

DRUGS (1)
  1. DINISOR [Suspect]
     Indication: MYOCARDIAL ISCHAEMIA
     Dosage: 240 MG Q DAY PO
     Route: 048
     Dates: start: 20020101, end: 20041023

REACTIONS (1)
  - ADAMS-STOKES SYNDROME [None]
